FAERS Safety Report 12722435 (Version 1)
Quarter: 2016Q3

REPORT INFORMATION
  Report Type: Other
  Country: US (occurrence: US)
  Receive Date: 20160907
  Receipt Date: 20160907
  Transmission Date: 20161109
  Serious: No
  Sender: FDA-Public Use
  Company Number: US-COL_22741_2016

PATIENT
  Age: 3 Year
  Sex: Female

DRUGS (1)
  1. COLGATE TOTAL ADVANCED CLEAN [Suspect]
     Active Substance: SODIUM FLUORIDE\TRICLOSAN
     Indication: PRODUCT USED FOR UNKNOWN INDICATION
     Dosage: NI/NI/
     Route: 048
     Dates: start: 201604

REACTIONS (4)
  - Accidental exposure to product by child [Unknown]
  - Eye disorder [Recovering/Resolving]
  - Ocular hyperaemia [None]
  - Eye irritation [Unknown]

NARRATIVE: CASE EVENT DATE: 201604
